FAERS Safety Report 12979001 (Version 1)
Quarter: 2016Q4

REPORT INFORMATION
  Report Type: Spontaneous
  Country: DE (occurrence: DE)
  Receive Date: 20161128
  Receipt Date: 20161128
  Transmission Date: 20170207
  Serious: Yes (Hospitalization)
  Sender: FDA-Public Use
  Company Number: DE-MYLANLABS-2016M1051048

PATIENT

DRUGS (2)
  1. HOGGAR NIGHT 25 [Suspect]
     Active Substance: DOXYLAMINE SUCCINATE
     Indication: PRODUCT USED FOR UNKNOWN INDICATION
     Dosage: 1500 MG, UNK
     Route: 048
     Dates: start: 20161117
  2. AMLODIPINE [Suspect]
     Active Substance: AMLODIPINE BESYLATE
     Indication: PRODUCT USED FOR UNKNOWN INDICATION
     Dosage: 100 MG, UNK
     Route: 048
     Dates: start: 20161117

REACTIONS (8)
  - Constipation [Unknown]
  - Dizziness [Unknown]
  - Hyperhidrosis [Unknown]
  - Suicide attempt [Unknown]
  - Nausea [Unknown]
  - Vomiting [Unknown]
  - Cold sweat [Unknown]
  - Tachycardia [Unknown]

NARRATIVE: CASE EVENT DATE: 20161118
